FAERS Safety Report 12168993 (Version 2)
Quarter: 2016Q2

REPORT INFORMATION
  Report Type: Report from Study
  Country: US (occurrence: US)
  Receive Date: 20160310
  Receipt Date: 20160415
  Transmission Date: 20160815
  Serious: Yes (Other)
  Sender: FDA-Public Use
  Company Number: US-BIOGEN-2016BI00197486

PATIENT

DRUGS (1)
  1. AVONEX [Suspect]
     Active Substance: INTERFERON BETA-1A
     Indication: MULTIPLE SCLEROSIS
     Route: 030
     Dates: end: 20160324

REACTIONS (8)
  - Anaphylactic shock [Recovered/Resolved]
  - Visual pathway disorder [Recovered/Resolved]
  - Visual impairment [Recovered/Resolved]
  - Anal incontinence [Recovered/Resolved]
  - Spinal compression fracture [Recovered/Resolved]
  - Fall [Recovered/Resolved]
  - Balance disorder [Recovered/Resolved]
  - Eye movement disorder [Recovered/Resolved]
